FAERS Safety Report 20007697 (Version 1)
Quarter: 2021Q4

REPORT INFORMATION
  Report Type: Spontaneous
  Country: ES (occurrence: ES)
  Receive Date: 20211028
  Receipt Date: 20211028
  Transmission Date: 20220303
  Serious: Yes (Disabling)
  Sender: FDA-Public Use
  Company Number: ES-LABALTER-2021000437

PATIENT
  Age: 60 Year
  Sex: Female

DRUGS (3)
  1. RISEDRONATE SODIUM [Suspect]
     Active Substance: RISEDRONATE SODIUM
     Indication: Osteopenia
     Dosage: UNK
  2. CHOLECALCIFEROL [Concomitant]
     Active Substance: CHOLECALCIFEROL
     Indication: Osteopenia
     Dosage: 800 INTERNATIONAL UNIT, QD
  3. CALCIUM CARBONATE [Concomitant]
     Active Substance: CALCIUM CARBONATE
     Indication: Osteopenia
     Dosage: UNK

REACTIONS (5)
  - Sciatica [Unknown]
  - Gait disturbance [Unknown]
  - Scoliosis [Unknown]
  - Atypical fracture [Unknown]
  - Dysmetria [Unknown]
